FAERS Safety Report 8887371 (Version 1)
Quarter: 2012Q4

REPORT INFORMATION
  Report Type: Spontaneous
  Country: US (occurrence: None)
  Receive Date: 20121101
  Receipt Date: 20121101
  Transmission Date: 20130627
  Serious: Yes (Hospitalization)
  Sender: FDA-Public Use
  Company Number: None

PATIENT
  Age: 85 Year
  Sex: Female
  Weight: 88 kg

DRUGS (16)
  1. COUMADIN [Suspect]
     Indication: AFIB
     Dosage: 3MG EOD PO
CHRONIC
     Route: 048
  2. COUMADIN [Suspect]
     Dosage: 2.5MG EOD PO
CHRONIC
     Route: 048
  3. PRILOSEC [Concomitant]
  4. FLONASE [Concomitant]
  5. CLARITIN [Concomitant]
  6. COREG [Concomitant]
  7. COLACE [Concomitant]
  8. LASIX [Concomitant]
  9. ALDACTONE [Concomitant]
  10. TYLENOL [Concomitant]
  11. ART TEARS [Concomitant]
  12. ALBUTEROL [Concomitant]
  13. NORCO [Concomitant]
  14. ATROVENT [Concomitant]
  15. ULTRAM [Concomitant]
  16. NYSTAT [Concomitant]

REACTIONS (4)
  - International normalised ratio increased [None]
  - Ecchymosis [None]
  - Anaemia [None]
  - Haemorrhage [None]
